FAERS Safety Report 14773676 (Version 1)
Quarter: 2018Q2

REPORT INFORMATION
  Report Type: Spontaneous
  Country: US (occurrence: US)
  Receive Date: 20180418
  Receipt Date: 20180418
  Transmission Date: 20180711
  Serious: No
  Sender: FDA-Public Use
  Company Number: US-BAYER-2018-065455

PATIENT
  Age: 70 Year
  Sex: Female
  Weight: 45 kg

DRUGS (2)
  1. CLARITIN [Suspect]
     Active Substance: LORATADINE
     Indication: NASOPHARYNGITIS
  2. CLARITIN [Suspect]
     Active Substance: LORATADINE
     Indication: HYPERSENSITIVITY
     Dosage: 1 DF, PRN
     Route: 048
     Dates: start: 201803, end: 20180402

REACTIONS (2)
  - Dyspnoea [Not Recovered/Not Resolved]
  - Drug hypersensitivity [None]

NARRATIVE: CASE EVENT DATE: 201803
